FAERS Safety Report 9783226 (Version 1)
Quarter: 2013Q4

REPORT INFORMATION
  Report Type: Spontaneous
  Country: CH (occurrence: CH)
  Receive Date: 20131226
  Receipt Date: 20131226
  Transmission Date: 20140711
  Serious: Yes (Hospitalization)
  Sender: FDA-Public Use
  Company Number: PHHY2013CH149426

PATIENT
  Age: 67 Year
  Sex: Male

DRUGS (3)
  1. METFIN [Suspect]
     Indication: TYPE 2 DIABETES MELLITUS
     Dosage: 1000 MG, BID
     Route: 048
     Dates: end: 20131114
  2. DUODART [Concomitant]
     Indication: BENIGN PROSTATIC HYPERPLASIA
     Route: 048
  3. LANTUS [Concomitant]
     Indication: TYPE 2 DIABETES MELLITUS
     Dosage: 16 IU, QD
     Route: 058

REACTIONS (6)
  - Spinal fracture [Recovered/Resolved]
  - Performance status decreased [Unknown]
  - Syncope [Unknown]
  - Dyspnoea [Unknown]
  - Lactic acidosis [Recovered/Resolved]
  - Medication error [Unknown]
